FAERS Safety Report 9495325 (Version 2)
Quarter: 2014Q1

REPORT INFORMATION
  Report Type: Spontaneous
  Country: CA (occurrence: CA)
  Receive Date: 20130903
  Receipt Date: 20140306
  Transmission Date: 20141002
  Serious: Yes (Hospitalization)
  Sender: FDA-Public Use
  Company Number: CA-GLAXOSMITHKLINE-A1038787A

PATIENT
  Age: 46 Year
  Sex: Female
  Weight: 86.4 kg

DRUGS (10)
  1. ADVAIR [Suspect]
     Indication: ASTHMA
     Dosage: 1PUFF TWICE PER DAY
     Route: 055
     Dates: start: 2011
  2. EBIXA [Concomitant]
  3. REACTINE (CETIRIZINE HYDROCHLORIDE) [Concomitant]
  4. SINGULAIR [Concomitant]
  5. SPIRIVA [Concomitant]
  6. NOVO-CLONIDINE [Concomitant]
  7. VITAMIN D [Concomitant]
  8. GLUCOSAMINE [Concomitant]
  9. INSULIN LANTUS [Concomitant]
  10. APIDRA [Concomitant]

REACTIONS (3)
  - Lower limb fracture [Recovered/Resolved]
  - Fall [Recovered/Resolved]
  - Treatment noncompliance [Unknown]
